FAERS Safety Report 8298306-1 (Version None)
Quarter: 2012Q2

REPORT INFORMATION
  Report Type: 
  Country: None (occurrence: None)
  Receive Date: 20120419
  Receipt Date: 20120411
  Transmission Date: 20120825
  Serious: Yes (Other)
  Sender: FDA-Public Use
  Company Number: GXBR2012US001093

PATIENT
  Sex: Male
  Weight: 2.891 kg

DRUGS (1)
  1. ENOXAPARIN SODIUM [Suspect]
     Dosage: MATERNAL DOSE: 40MG QD
     Route: 064

REACTIONS (3)
  - MATERNAL DRUGS AFFECTING FOETUS [None]
  - FOETAL EXPOSURE DURING PREGNANCY [None]
  - PREMATURE BABY [None]
